FAERS Safety Report 4774395-3 (Version None)
Quarter: 2005Q3

REPORT INFORMATION
  Report Type: 
  Country: None (occurrence: None)
  Receive Date: 20050919
  Receipt Date: 20050919
  Transmission Date: 20060218
  Serious: Yes (Disabling)
  Sender: FDA-Public Use
  Company Number: None

PATIENT
  Age: 53 Year
  Sex: Male
  Weight: 83.9154 kg

DRUGS (1)
  1. CEFZIL [Suspect]
     Indication: SINUSITIS
     Dates: start: 19990605, end: 19990615

REACTIONS (8)
  - CONFUSIONAL STATE [None]
  - DIZZINESS [None]
  - HEADACHE [None]
  - IMPAIRED DRIVING ABILITY [None]
  - NEUROPATHY [None]
  - OSCILLOPSIA [None]
  - READING DISORDER [None]
  - VESTIBULAR DISORDER [None]
